FAERS Safety Report 18067088 (Version 2)
Quarter: 2021Q1

REPORT INFORMATION
  Report Type: Spontaneous
  Country: US (occurrence: US)
  Receive Date: 20200724
  Receipt Date: 20210121
  Transmission Date: 20210419
  Serious: Yes (Other)
  Sender: FDA-Public Use
  Company Number: US-GILEAD-2020-0485091

PATIENT
  Age: 46 Year
  Sex: Male
  Weight: 95.24 kg

DRUGS (22)
  1. TYLENOL WITH CODEINE [Concomitant]
     Active Substance: ACETAMINOPHEN\CODEINE PHOSPHATE
  2. VICODIN [Concomitant]
     Active Substance: ACETAMINOPHEN\HYDROCODONE BITARTRATE
  3. XANAX [Concomitant]
     Active Substance: ALPRAZOLAM
  4. TYLENOL [Concomitant]
     Active Substance: ACETAMINOPHEN
  5. ATRIPLA [Suspect]
     Active Substance: EFAVIRENZ\EMTRICITABINE\TENOFOVIR DISOPROXIL FUMARATE
     Indication: HIV INFECTION
     Dosage: UNK
     Route: 048
     Dates: start: 200708, end: 2014
  6. TIVICAY [Concomitant]
     Active Substance: DOLUTEGRAVIR SODIUM
  7. FLONASE ALLERGY RELIEF [Concomitant]
     Active Substance: FLUTICASONE PROPIONATE
  8. PROTONIX [OMEPRAZOLE] [Concomitant]
     Active Substance: OMEPRAZOLE
  9. ADIPEX [PHENTERMINE HYDROCHLORIDE] [Concomitant]
  10. ALLEGRA [Concomitant]
     Active Substance: FEXOFENADINE HYDROCHLORIDE
  11. KLONOPIN [Concomitant]
     Active Substance: CLONAZEPAM
  12. VITAMIN D NOS [Concomitant]
     Active Substance: VITAMIN D NOS
  13. ZETIA [Concomitant]
     Active Substance: EZETIMIBE
  14. COREG [Concomitant]
     Active Substance: CARVEDILOL
  15. LISINOPRIL. [Concomitant]
     Active Substance: LISINOPRIL
  16. LUNESTA [Concomitant]
     Active Substance: ESZOPICLONE
  17. EPIVIR [Concomitant]
     Active Substance: LAMIVUDINE
  18. ALLOPURINOL. [Concomitant]
     Active Substance: ALLOPURINOL
  19. BUSPAR [Concomitant]
     Active Substance: BUSPIRONE HYDROCHLORIDE
  20. BENADRYL ALLERGY RELIEF [Concomitant]
  21. TRIUMEQ [Concomitant]
     Active Substance: ABACAVIR SULFATE\DOLUTEGRAVIR SODIUM\LAMIVUDINE
  22. ZIAGEN [Concomitant]
     Active Substance: ABACAVIR SULFATE

REACTIONS (6)
  - Emotional distress [Not Recovered/Not Resolved]
  - Depression [Not Recovered/Not Resolved]
  - Pain [Not Recovered/Not Resolved]
  - Anxiety [Not Recovered/Not Resolved]
  - Chronic kidney disease [Not Recovered/Not Resolved]
  - Anhedonia [Not Recovered/Not Resolved]

NARRATIVE: CASE EVENT DATE: 200710
